FAERS Safety Report 9240050 (Version 1)
Quarter: 2013Q2

REPORT INFORMATION
  Report Type: Spontaneous
  Country: US (occurrence: None)
  Receive Date: 20130417
  Receipt Date: 20130417
  Transmission Date: 20140414
  Serious: Yes (Death)
  Sender: FDA-Public Use
  Company Number: 2013-US-0139

PATIENT
  Age: 69 Year
  Sex: Male

DRUGS (1)
  1. ABSTRAL [Suspect]
     Indication: PRODUCT USED FOR UNKNOWN INDICATION
     Dosage: 100 MCG EVERY 4 HOURS PRN SUBLINGUAL
     Route: 060
     Dates: start: 20110609

REACTIONS (1)
  - Failure to thrive [None]
